FAERS Safety Report 15053069 (Version 3)
Quarter: 2018Q3

REPORT INFORMATION
  Report Type: Spontaneous
  Country: BR (occurrence: BR)
  Receive Date: 20180622
  Receipt Date: 20180718
  Transmission Date: 20181010
  Serious: Yes (Hospitalization, Other)
  Sender: FDA-Public Use
  Company Number: BR-PFIZER INC-2018248522

PATIENT
  Age: 44 Year
  Sex: Male
  Weight: 92 kg

DRUGS (3)
  1. ETOPOSIDE. [Suspect]
     Active Substance: ETOPOSIDE
     Indication: ACUTE LYMPHOCYTIC LEUKAEMIA
     Dosage: 160 MG PER DAY
     Dates: start: 20180419, end: 20180424
  2. MITOXANTRONE HCL [Suspect]
     Active Substance: MITOXANTRONE HYDROCHLORIDE
     Indication: ACUTE LYMPHOCYTIC LEUKAEMIA
     Dosage: 12 MG PER DAY
     Dates: start: 20180419, end: 20180424
  3. CYTARABINE. [Suspect]
     Active Substance: CYTARABINE
     Indication: ACUTE LYMPHOCYTIC LEUKAEMIA
     Dosage: 4 G PER DAY, EVERY 12 HOURS
     Dates: start: 20180419, end: 20180424

REACTIONS (7)
  - Candida infection [Unknown]
  - Drug ineffective [Unknown]
  - Sinusitis fungal [Recovered/Resolved]
  - Cholecystitis [Unknown]
  - Klebsiella infection [Unknown]
  - Septic shock [Unknown]
  - Febrile neutropenia [Unknown]

NARRATIVE: CASE EVENT DATE: 2018
